FAERS Safety Report 24673930 (Version 1)
Quarter: 2024Q4

REPORT INFORMATION
  Report Type: Spontaneous
  Country: CN (occurrence: CN)
  Receive Date: 20241128
  Receipt Date: 20241128
  Transmission Date: 20250114
  Serious: Yes (Other)
  Sender: RANBAXY
  Company Number: CN-SUN PHARMACEUTICAL INDUSTRIES LTD-2024R1-481417

PATIENT
  Sex: Male

DRUGS (2)
  1. CALCITRIOL [Suspect]
     Active Substance: CALCITRIOL
     Indication: Pseudohypoparathyroidism
     Dosage: 0.25 MICROGRAM
     Route: 065
  2. CHOLECALCIFEROL [Suspect]
     Active Substance: CHOLECALCIFEROL
     Indication: Pseudohypoparathyroidism
     Dosage: CONTAINING 300 MG CALCIUM AND 60 IU VITAMIN D3
     Route: 065

REACTIONS (1)
  - Hypothyroidism [Unknown]
